FAERS Safety Report 16988533 (Version 1)
Quarter: 2019Q4

REPORT INFORMATION
  Report Type: Not Available
  Country: JP (occurrence: JP)
  Receive Date: 20191104
  Receipt Date: 20191104
  Transmission Date: 20200122
  Serious: Yes (Other)
  Sender: FDA-Public Use
  Company Number: JP-RECORDATI RARE DISEASES INC.-JP-R13005-19-00308

PATIENT
  Age: 10 Day
  Sex: Female
  Weight: 1.07 kg

DRUGS (5)
  1. DAIKENCHUTO EXTRACT [Concomitant]
     Indication: PRODUCT USED FOR UNKNOWN INDICATION
     Route: 065
     Dates: start: 20190609, end: 20190806
  2. NEOPROFEN [Suspect]
     Active Substance: IBUPROFEN LYSINE
     Route: 042
     Dates: start: 20190615, end: 20190615
  3. NEOPROFEN [Suspect]
     Active Substance: IBUPROFEN LYSINE
     Route: 042
     Dates: start: 20190616, end: 20190616
  4. NEOPROFEN [Suspect]
     Active Substance: IBUPROFEN LYSINE
     Indication: PATENT DUCTUS ARTERIOSUS
     Route: 042
     Dates: start: 20190614, end: 20190614
  5. RESPIA [Concomitant]
     Active Substance: CAFFEINE
     Indication: PRODUCT USED FOR UNKNOWN INDICATION
     Route: 065
     Dates: start: 20190606, end: 20190730

REACTIONS (1)
  - Hypoxia [Recovered/Resolved]

NARRATIVE: CASE EVENT DATE: 20190616
